FAERS Safety Report 7803351-3 (Version None)
Quarter: 2011Q4

REPORT INFORMATION
  Report Type: 
  Country: None (occurrence: None)
  Receive Date: 20111007
  Receipt Date: 20111003
  Transmission Date: 20120403
  Serious: Yes (Death, Hospitalization, Other)
  Sender: FDA-Public Use
  Company Number: PHEH2011US04217

PATIENT
  Sex: Female
  Weight: 118 kg

DRUGS (16)
  1. LISINOPRIL [Concomitant]
     Dosage: 40 MG, BEDTIME
  2. TIZANIDINE HCL [Concomitant]
     Dosage: 6 MG, AT BEDTIME
  3. LYRICA [Concomitant]
     Dosage: 100 MG, BEDTIME
  4. OXYBUTYNIN [Concomitant]
     Dosage: 10 MG, BID
  5. GILENYA [Suspect]
     Indication: MULTIPLE SCLEROSIS
     Dosage: 0.5 MG, QD
     Route: 048
     Dates: start: 20110802
  6. LOPRESSOR [Concomitant]
     Dosage: 50 MG, BID
  7. AMLODIPINE [Concomitant]
     Indication: HYPERTENSION
     Dosage: 2.5 MG, BID
     Route: 048
     Dates: start: 20090809, end: 20110902
  8. PREVACID [Concomitant]
     Dosage: 30 MG, DAILY
  9. LISINOPRIL [Concomitant]
     Indication: HYPERTENSION
     Dosage: 20 MG, DAILY
     Dates: start: 20091218, end: 20110902
  10. COUMADIN [Concomitant]
     Indication: DEEP VEIN THROMBOSIS
     Dosage: 3-4 MG, DAILY
     Route: 048
     Dates: start: 20070404
  11. LEVOTHYROXINE SODIUM [Concomitant]
     Indication: HYPOTHYROIDISM
     Dosage: 125 UG, BID
     Dates: start: 20100218
  12. WARFARIN SODIUM [Concomitant]
     Dosage: 2 MG, DAILY
  13. BACLOFEN [Concomitant]
     Dosage: 40 MG, AT BEDTIME
  14. PANTOPRAZOLE [Concomitant]
     Indication: GASTROOESOPHAGEAL REFLUX DISEASE
     Dosage: 40 MG, DAILY
     Route: 048
     Dates: start: 20070613
  15. FERROUS SULFATE TAB [Concomitant]
     Dosage: 300 MG, BID
  16. BACLOFEN [Concomitant]
     Dosage: 20 MG, TID

REACTIONS (30)
  - RENAL FAILURE ACUTE [None]
  - HYPONATRAEMIA [None]
  - RESPIRATORY FAILURE [None]
  - MENTAL STATUS CHANGES [None]
  - BLOOD PRESSURE DECREASED [None]
  - VISUAL IMPAIRMENT [None]
  - ANAEMIA [None]
  - HYPOTHERMIA [None]
  - ASTHENIA [None]
  - METABOLIC ENCEPHALOPATHY [None]
  - MULTI-ORGAN FAILURE [None]
  - URINARY RETENTION [None]
  - PALLOR [None]
  - CONVULSION [None]
  - LETHARGY [None]
  - ECCHYMOSIS [None]
  - HYPERTENSION [None]
  - DYSPHAGIA [None]
  - URINARY TRACT INFECTION [None]
  - CONFUSIONAL STATE [None]
  - OEDEMA PERIPHERAL [None]
  - RHINORRHOEA [None]
  - MUSCULOSKELETAL STIFFNESS [None]
  - PLATELET COUNT DECREASED [None]
  - RESPIRATORY RATE DECREASED [None]
  - CELLULITIS [None]
  - RENAL TUBULAR NECROSIS [None]
  - HYPERKALAEMIA [None]
  - HYPERPHOSPHATAEMIA [None]
  - CREPITATIONS [None]
